FAERS Safety Report 18517904 (Version 1)
Quarter: 2020Q4

REPORT INFORMATION
  Report Type: Report from Study
  Country: CA (occurrence: CA)
  Receive Date: 20201118
  Receipt Date: 20201118
  Transmission Date: 20210114
  Serious: Yes (Other)
  Sender: FDA-Public Use
  Company Number: CA-NALPROPION PHARMACEUTICALS INC.-2020-010724

PATIENT

DRUGS (7)
  1. LYRICA [Concomitant]
     Active Substance: PREGABALIN
     Indication: NEURALGIA
     Dosage: 1 IN 1 D
     Route: 048
  2. CONTRAVE [Suspect]
     Active Substance: BUPROPION HYDROCHLORIDE\NALTREXONE HYDROCHLORIDE
     Indication: WEIGHT CONTROL
     Dosage: 90MG/8MG, 1 TABLET IN THE MORNING
     Route: 048
     Dates: start: 20200630, end: 20200706
  3. EFFEXOR [Concomitant]
     Active Substance: VENLAFAXINE HYDROCHLORIDE
     Indication: DEPRESSION
     Dosage: 1 IN 1 D
     Route: 048
  4. CONTRAVE [Suspect]
     Active Substance: BUPROPION HYDROCHLORIDE\NALTREXONE HYDROCHLORIDE
     Dosage: 90MG/8MG, 1 TABLET IN THE MORNING AND 1 TABLET IN THE EVENING
     Route: 048
     Dates: start: 20200707, end: 20200713
  5. CONTRAVE [Suspect]
     Active Substance: BUPROPION HYDROCHLORIDE\NALTREXONE HYDROCHLORIDE
     Dosage: 90MG/8MG, 2 TABLETS IN THE MORNING AND 1 TABLET IN THE EVENING
     Route: 048
     Dates: start: 20200714, end: 20200720
  6. CONTRAVE [Suspect]
     Active Substance: BUPROPION HYDROCHLORIDE\NALTREXONE HYDROCHLORIDE
     Dosage: 90MG/8MG, 2 TABLETS IN THE MORNING AND 2 TABLET IN THE EVENING
     Route: 048
     Dates: start: 20200721, end: 20201029
  7. EFFEXOR [Concomitant]
     Active Substance: VENLAFAXINE HYDROCHLORIDE
     Dosage: DOSE DECREASED (37.5 MG, 1 IN 1 D)
     Route: 048

REACTIONS (10)
  - Food craving [Recovering/Resolving]
  - Hyperhidrosis [Recovering/Resolving]
  - Energy increased [Unknown]
  - Stress [Not Recovered/Not Resolved]
  - Tremor [Recovering/Resolving]
  - Therapeutic product effect decreased [Unknown]
  - Cholelithiasis [Not Recovered/Not Resolved]
  - Dry mouth [Recovering/Resolving]
  - Somnolence [Not Recovered/Not Resolved]
  - Constipation [Recovering/Resolving]

NARRATIVE: CASE EVENT DATE: 2020
